FAERS Safety Report 24621526 (Version 1)
Quarter: 2024Q4

REPORT INFORMATION
  Report Type: Spontaneous
  Country: US (occurrence: US)
  Receive Date: 20241114
  Receipt Date: 20241114
  Transmission Date: 20250115
  Serious: Yes (Death, Hospitalization)
  Sender: BEIGENE
  Company Number: US-BEIGENE-BGN-2024-018294

PATIENT

DRUGS (1)
  1. BRUKINSA [Suspect]
     Active Substance: ZANUBRUTINIB
     Indication: Chronic lymphocytic leukaemia
     Dosage: UNK

REACTIONS (4)
  - Endophthalmitis [Fatal]
  - Fusarium infection [Fatal]
  - Septic shock [Fatal]
  - Osteomyelitis [Unknown]
